FAERS Safety Report 9105799 (Version 1)
Quarter: 2013Q1

REPORT INFORMATION
  Report Type: Spontaneous
  Country: RU (occurrence: RU)
  Receive Date: 20130221
  Receipt Date: 20130221
  Transmission Date: 20140127
  Serious: Yes (Other)
  Sender: FDA-Public Use
  Company Number: RU-VIIV HEALTHCARE LIMITED-B0868467A

PATIENT
  Age: 39 Year
  Sex: Female

DRUGS (1)
  1. COMBIVIR [Suspect]
     Indication: PRODUCT USED FOR UNKNOWN INDICATION
     Route: 048

REACTIONS (4)
  - Rash [Recovered/Resolved]
  - Urticaria [Recovered/Resolved]
  - Pyrexia [Recovered/Resolved]
  - Body temperature increased [Recovered/Resolved]
